FAERS Safety Report 14817181 (Version 4)
Quarter: 2018Q4

REPORT INFORMATION
  Report Type: Spontaneous
  Country: US (occurrence: US)
  Receive Date: 20180426
  Receipt Date: 20181023
  Transmission Date: 20190204
  Serious: Yes (Other)
  Sender: FDA-Public Use
  Company Number: PHEH2018US016017

PATIENT
  Age: 20 Year
  Sex: Female
  Weight: 53.97 kg

DRUGS (1)
  1. ZOFRAN [Suspect]
     Active Substance: ONDANSETRON HYDROCHLORIDE
     Indication: MORNING SICKNESS
     Dosage: 4 MG, Q6H
     Route: 048
     Dates: start: 20141004, end: 20141226

REACTIONS (6)
  - Emotional distress [Unknown]
  - Maternal exposure during pregnancy [Unknown]
  - Product use in unapproved indication [Unknown]
  - Premature labour [Unknown]
  - Premature delivery [Unknown]
  - Pain [Unknown]

NARRATIVE: CASE EVENT DATE: 20150429
